FAERS Safety Report 13721115 (Version 1)
Quarter: 2017Q3

REPORT INFORMATION
  Report Type: Spontaneous
  Country: US (occurrence: US)
  Receive Date: 20170705
  Receipt Date: 20170705
  Transmission Date: 20171127
  Serious: Yes (Life-Threatening, Hospitalization)
  Sender: FDA-Public Use
  Company Number: None

PATIENT
  Age: 43 Year
  Sex: Female
  Weight: 96 kg

DRUGS (2)
  1. METRONIDAZOLE. [Suspect]
     Active Substance: METRONIDAZOLE
     Indication: INFECTION
     Dosage: ?          OTHER DOSE:MG;OTHER FREQUENCY:ONCE;?
     Route: 040
     Dates: start: 20170406, end: 20170406
  2. LEVOFLOXACIN. [Suspect]
     Active Substance: LEVOFLOXACIN
     Indication: INFECTION
     Dosage: ?          OTHER DOSE:MG;OTHER FREQUENCY:ONCE;?
     Route: 042
     Dates: start: 20170406, end: 20170406

REACTIONS (7)
  - Nausea [None]
  - Diarrhoea [None]
  - Rash [None]
  - Vomiting [None]
  - Septic shock [None]
  - Hypoxia [None]
  - Bacterial infection [None]

NARRATIVE: CASE EVENT DATE: 20170406
